FAERS Safety Report 6264838-0 (Version None)
Quarter: 2009Q3

REPORT INFORMATION
  Report Type: 
  Country: None (occurrence: None)
  Receive Date: 20090710
  Receipt Date: 20090703
  Transmission Date: 20100115
  Serious: Yes (Hospitalization)
  Sender: FDA-Public Use
  Company Number: FR-BAUSCH-2009BL001561

PATIENT
  Age: 0 Day
  Sex: Female

DRUGS (3)
  1. CARTEOLOL HYDROCHLORIDE [Suspect]
     Indication: GLAUCOMA
     Route: 064
     Dates: start: 20080201, end: 20080503
  2. LUMIGAN [Concomitant]
     Indication: GLAUCOMA
     Route: 064
     Dates: start: 20080101, end: 20080201
  3. TIMOLOL MALEATE [Concomitant]
     Indication: GLAUCOMA
     Route: 064
     Dates: start: 20080101, end: 20080201

REACTIONS (2)
  - BRADYCARDIA FOETAL [None]
  - MATERNAL DRUGS AFFECTING FOETUS [None]
